FAERS Safety Report 10483838 (Version 1)
Quarter: 2014Q3

REPORT INFORMATION
  Report Type: Spontaneous
  Country: GB (occurrence: None)
  Receive Date: 20140926
  Receipt Date: 20140926
  Transmission Date: 20150326
  Serious: Yes (Disabling)
  Sender: FDA-Public Use
  Company Number: 2014GR_BP006725

PATIENT
  Sex: Male

DRUGS (1)
  1. FINASTERIDE (FINASTERIDE) [Suspect]
     Active Substance: FINASTERIDE
     Indication: PROSTATISM
     Dosage: NR (5 MG) ORAL
     Route: 048
     Dates: start: 201312, end: 201407

REACTIONS (2)
  - Lethargy [None]
  - Anhedonia [None]

NARRATIVE: CASE EVENT DATE: 201401
